FAERS Safety Report 15832597 (Version 1)
Quarter: 2018Q4

REPORT INFORMATION
  Report Type: Spontaneous
  Country: US (occurrence: US)
  Receive Date: 20181220
  Receipt Date: 20181220
  Transmission Date: 20190205
  Serious: No
  Sender: FDA-Public Use
  Company Number: None

PATIENT
  Age: 53 Year
  Sex: Female

DRUGS (1)
  1. DALFAMPRIDINE 10MG ER TAB [Suspect]
     Active Substance: DALFAMPRIDINE
     Indication: MUSCULAR DYSTROPHY
     Route: 048
     Dates: start: 201811, end: 201811

REACTIONS (4)
  - Drug intolerance [None]
  - Dizziness [None]
  - Nausea [None]
  - Headache [None]

NARRATIVE: CASE EVENT DATE: 20181101
